FAERS Safety Report 19643873 (Version 1)
Quarter: 2021Q3

REPORT INFORMATION
  Report Type: Spontaneous
  Country: JP (occurrence: JP)
  Receive Date: 20210730
  Receipt Date: 20210730
  Transmission Date: 20211014
  Serious: Yes (Hospitalization)
  Sender: FDA-Public Use
  Company Number: JP-SUNOVION-2021DSP008145

PATIENT
  Age: 2 Decade
  Sex: Male

DRUGS (4)
  1. LATUDA [Suspect]
     Active Substance: LURASIDONE HYDROCHLORIDE
     Indication: SCHIZOPHRENIA
     Dosage: 80 MG, QD
     Route: 048
  2. PSYCHOTROPIC AGENTS [Concomitant]
     Active Substance: UNSPECIFIED INGREDIENT
     Dosage: UNK
     Route: 065
  3. ROZEREM [Concomitant]
     Active Substance: RAMELTEON
     Dosage: 8 MG, QD
     Route: 065
  4. PSYCHOTROPIC AGENTS [Concomitant]
     Active Substance: UNSPECIFIED INGREDIENT
     Dosage: UNK
     Route: 065

REACTIONS (1)
  - Aggression [Unknown]
